FAERS Safety Report 13921081 (Version 1)
Quarter: 2017Q3

REPORT INFORMATION
  Report Type: Spontaneous
  Country: JP (occurrence: JP)
  Receive Date: 20170830
  Receipt Date: 20170830
  Transmission Date: 20171127
  Serious: Yes (Other)
  Sender: FDA-Public Use
  Company Number: JP-ASTRAZENECA-2017SE87585

PATIENT
  Age: 85 Year
  Sex: Male
  Weight: 53 kg

DRUGS (10)
  1. BEPRICOR [Suspect]
     Active Substance: BEPRIDIL
     Route: 048
     Dates: start: 20170712, end: 20170718
  2. BUFFERIN [Concomitant]
     Active Substance: ASPIRIN
     Dosage: 81 MG, EVERY DAY, 0-0-1
     Route: 048
  3. CRESTOR [Suspect]
     Active Substance: ROSUVASTATIN CALCIUM
     Route: 048
     Dates: start: 20170707, end: 20170718
  4. CILOSTAZOL. [Concomitant]
     Active Substance: CILOSTAZOL
     Dosage: 100 MG, TWICE A DAY, 1-0-1
     Route: 048
  5. RILMAZAFONE HYDROCHLORIDE [Concomitant]
     Active Substance: RILMAZAFONE HYDROCHLORIDE
     Dosage: 2 MG EVERY DAY, BEFORE SLEEP
     Route: 048
  6. SENNOSIDE [Concomitant]
     Active Substance: SENNOSIDES
     Dosage: 24 MG EVERY DAY, BEFORE SLEEP
     Route: 048
  7. FAMOTIDINE. [Concomitant]
     Active Substance: FAMOTIDINE
     Dosage: 10 MG, EVERY DAY, 0-0-1
     Route: 048
  8. AMLODIPINE [Concomitant]
     Active Substance: AMLODIPINE BESYLATE
     Dosage: 2.5 MG, EVERY DAY, 0-0-1
     Route: 048
  9. BISOPROLOL FUMARATE. [Concomitant]
     Active Substance: BISOPROLOL FUMARATE
     Dosage: THREE TIMES ADAY, 0.5 -1 -1
     Route: 048
     Dates: start: 20170713
  10. VALSARTAN. [Concomitant]
     Active Substance: VALSARTAN
     Dosage: 80 MG, EVERY DAY, 0-0-1
     Route: 048

REACTIONS (1)
  - Drug-induced liver injury [Recovered/Resolved]

NARRATIVE: CASE EVENT DATE: 20170718
